FAERS Safety Report 9464039 (Version 2)
Quarter: 2013Q4

REPORT INFORMATION
  Report Type: Spontaneous
  Country: FR (occurrence: FR)
  Receive Date: 20130819
  Receipt Date: 20131010
  Transmission Date: 20140711
  Serious: Yes (Other)
  Sender: FDA-Public Use
  Company Number: FR-GE HEALTHCARE MEDICAL DIAGNOSTICS-VISP-PR-1308S-0771

PATIENT
  Age: 59 Year
  Sex: Male

DRUGS (3)
  1. VISIPAQUE [Suspect]
     Indication: PRODUCT USED FOR UNKNOWN INDICATION
     Dosage: DOSE NOT REPORTED
     Route: 042
     Dates: start: 20130426, end: 20130426
  2. VISIPAQUE [Suspect]
     Indication: DIAGNOSTIC PROCEDURE
     Dosage: DOSE NOT REPORTED
     Route: 042
     Dates: start: 201209, end: 201209
  3. GLUCOTEP [Suspect]
     Route: 042
     Dates: start: 20130426, end: 20130426

REACTIONS (3)
  - Skin exfoliation [Recovered/Resolved]
  - Dermatitis bullous [Recovered/Resolved]
  - Pruritus [Recovered/Resolved]
